FAERS Safety Report 6873372-6 (Version None)
Quarter: 2010Q3

REPORT INFORMATION
  Report Type: 
  Country: None (occurrence: None)
  Receive Date: 20100723
  Receipt Date: 20090219
  Transmission Date: 20110219
  Serious: No
  Sender: FDA-Public Use
  Company Number: US-PFIZER INC-2008155249

PATIENT
  Sex: Female
  Weight: 52.154 kg

DRUGS (4)
  1. CHANTIX [Suspect]
     Indication: SMOKING CESSATION THERAPY
     Dates: start: 20070101, end: 20070801
  2. PREMARIN [Concomitant]
     Dosage: UNK
  3. DRUG, UNSPECIFIED [Concomitant]
     Dosage: UNK
  4. ANTIHYPERTENSIVES [Concomitant]
     Dosage: UNK

REACTIONS (6)
  - ASTHENIA [None]
  - DEPRESSION [None]
  - HYPERSOMNIA [None]
  - MOOD ALTERED [None]
  - PERSONALITY CHANGE [None]
  - REGRESSIVE BEHAVIOUR [None]
